FAERS Safety Report 14587629 (Version 1)
Quarter: 2018Q1

REPORT INFORMATION
  Report Type: Spontaneous
  Country: US (occurrence: US)
  Receive Date: 20180301
  Receipt Date: 20180301
  Transmission Date: 20180509
  Serious: No
  Sender: FDA-Public Use
  Company Number: US-BRACCO DIAGNOSTICS, INC.-2017US04340

PATIENT
  Age: 36 Year
  Sex: Female

DRUGS (1)
  1. ISOVUE-M 200 [Suspect]
     Active Substance: IOPAMIDOL
     Indication: CHOLANGIOGRAM
     Dosage: 12 ML, SINGLE
     Route: 050
     Dates: start: 20170920, end: 20170920

REACTIONS (3)
  - No adverse event [Unknown]
  - Wrong drug administered [Unknown]
  - Incorrect route of drug administration [Unknown]

NARRATIVE: CASE EVENT DATE: 20170920
